FAERS Safety Report 4772364-0 (Version None)
Quarter: 2005Q3

REPORT INFORMATION
  Report Type: 
  Country: None (occurrence: None)
  Receive Date: 20050919
  Receipt Date: 20041122
  Transmission Date: 20060218
  Serious: No
  Sender: FDA-Public Use
  Company Number: US-BRISTOL-MYERS SQUIBB COMPANY-12773594

PATIENT
  Age: 63 Year
  Sex: Female
  Weight: 59 kg

DRUGS (14)
  1. KENALOG-40 [Suspect]
     Indication: MULTIPLE ALLERGIES
     Route: 051
     Dates: start: 19991020, end: 20040501
  2. TRIAMCINOLONE [Concomitant]
     Route: 045
  3. NASACORT [Concomitant]
  4. ALBUTEROL [Concomitant]
  5. CENTRUM [Concomitant]
  6. BETACAROTENE [Concomitant]
  7. VITAMIN B COMPLEX CAP [Concomitant]
  8. FISH OIL [Concomitant]
  9. ASCORBIC ACID [Concomitant]
  10. CALCIUM GLUCONATE [Concomitant]
  11. MAGNESIUM [Concomitant]
  12. GREEN TEA [Concomitant]
  13. BLACK COHOSH [Concomitant]
  14. LORATADINE [Concomitant]

REACTIONS (2)
  - BLOOD PRESSURE INCREASED [None]
  - GLAUCOMA [None]
